FAERS Safety Report 20308760 (Version 1)
Quarter: 2022Q1

REPORT INFORMATION
  Report Type: Other
  Country: NL (occurrence: None)
  Receive Date: 20220107
  Receipt Date: 20220107
  Transmission Date: 20220423
  Serious: Yes (Death, Other)
  Sender: FDA-Public Use
  Company Number: NL-IPSEN Group, Research and Development-2021-33001

PATIENT

DRUGS (1)
  1. SOMATROPIN [Suspect]
     Active Substance: SOMATROPIN
     Indication: Growth hormone deficiency
     Route: 065

REACTIONS (6)
  - Death [Fatal]
  - Cerebrovascular accident [Unknown]
  - Diabetes mellitus [Unknown]
  - Cardiovascular disorder [Unknown]
  - Body mass index increased [Unknown]
  - Therapeutic response unexpected [Unknown]
